FAERS Safety Report 6803550-3 (Version None)
Quarter: 2010Q2

REPORT INFORMATION
  Report Type: 
  Country: None (occurrence: None)
  Receive Date: 20100628
  Receipt Date: 20100623
  Transmission Date: 20101027
  Serious: Yes (Other)
  Sender: FDA-Public Use
  Company Number: US-MERCK-1006USA01718

PATIENT
  Sex: Female

DRUGS (1)
  1. FOSAMAX [Suspect]
     Route: 048

REACTIONS (5)
  - BONE DENSITY DECREASED [None]
  - FALL [None]
  - FEMORAL NECK FRACTURE [None]
  - FLATULENCE [None]
  - PATELLA FRACTURE [None]
